FAERS Safety Report 6555374-2 (Version None)
Quarter: 2010Q1

REPORT INFORMATION
  Report Type: 
  Country: None (occurrence: None)
  Receive Date: 20100128
  Receipt Date: 20090729
  Transmission Date: 20100710
  Serious: No
  Sender: FDA-Public Use
  Company Number: A0800791A

PATIENT
  Age: 35 Year
  Sex: Female

DRUGS (3)
  1. WELLBUTRIN [Suspect]
     Indication: DEPRESSION
     Dosage: 100MG TWICE PER DAY
     Route: 048
  2. DIPHENHYDRAMINE HYDROCHLORIDE [Suspect]
     Indication: INSOMNIA
     Dosage: 50MG PER DAY
     Route: 048
  3. SUBOXONE [Suspect]
     Indication: SUBSTANCE ABUSE
     Route: 048

REACTIONS (2)
  - DRUG SCREEN POSITIVE [None]
  - INCORRECT DRUG ADMINISTRATION DURATION [None]
